FAERS Safety Report 11823526 (Version 1)
Quarter: 2015Q4

REPORT INFORMATION
  Report Type: Report from Study
  Country: GB (occurrence: GB)
  Receive Date: 20151210
  Receipt Date: 20151210
  Transmission Date: 20160305
  Serious: Yes (Death, Hospitalization)
  Sender: FDA-Public Use
  Company Number: GB-ASTRAZENECA-2014SE51252

PATIENT
  Age: 883 Month
  Sex: Female

DRUGS (3)
  1. AZD2281 [Suspect]
     Active Substance: OLAPARIB
     Indication: SMALL CELL LUNG CANCER
     Route: 048
     Dates: start: 20140530, end: 20140701
  2. PREDNISOLONE. [Concomitant]
     Active Substance: PREDNISOLONE
     Indication: NAUSEA
     Route: 048
  3. DEXAMETHASONE. [Concomitant]
     Active Substance: DEXAMETHASONE
     Indication: NAUSEA
     Route: 048

REACTIONS (1)
  - Lower respiratory tract infection [Fatal]

NARRATIVE: CASE EVENT DATE: 20140709
